FAERS Safety Report 22331040 (Version 1)
Quarter: 2023Q2

REPORT INFORMATION
  Report Type: Spontaneous
  Country: IR (occurrence: IR)
  Receive Date: 20230517
  Receipt Date: 20230517
  Transmission Date: 20230721
  Serious: Yes (Hospitalization)
  Sender: FDA-Public Use
  Company Number: IR-STRIDES ARCOLAB LIMITED-2023SP007129

PATIENT
  Age: 25 Year
  Sex: Male

DRUGS (5)
  1. LIDOCAINE [Suspect]
     Active Substance: LIDOCAINE
     Indication: Genital pain
     Dosage: UNK; TWO TUBES OF LIDOCAINE OINTMENT DAILY 5% (70G/10G)
     Route: 061
  2. LIDOCAINE [Suspect]
     Active Substance: LIDOCAINE
     Indication: Pruritus genital
  3. BENZOCAINE [Suspect]
     Active Substance: BENZOCAINE
     Indication: Genital pain
     Dosage: UNK; TWO TUBES OF BENZOCAINE OINTMENT DAILY 5% (60G/10G)
     Route: 061
  4. BENZOCAINE [Suspect]
     Active Substance: BENZOCAINE
     Indication: Pruritus genital
  5. PODOPHYLLUM RESIN [Concomitant]
     Active Substance: PODOPHYLLUM RESIN
     Indication: Anogenital warts
     Dosage: UNK
     Route: 061

REACTIONS (4)
  - Haemolysis [Recovered/Resolved]
  - Methaemoglobinaemia [Recovered/Resolved]
  - Overdose [Unknown]
  - Off label use [Unknown]
